FAERS Safety Report 11257646 (Version 1)
Quarter: 2015Q3

REPORT INFORMATION
  Report Type: Spontaneous
  Country: US (occurrence: US)
  Receive Date: 20150710
  Receipt Date: 20150710
  Transmission Date: 20151125
  Serious: Yes (Hospitalization, Other)
  Sender: FDA-Public Use
  Company Number: US-ROCHE-1604538

PATIENT
  Sex: Male

DRUGS (2)
  1. RITUXAN [Suspect]
     Active Substance: RITUXIMAB
     Indication: NON-HODGKIN^S LYMPHOMA
     Route: 042
     Dates: start: 20130516
  2. RITUXAN [Suspect]
     Active Substance: RITUXIMAB
     Route: 042
     Dates: start: 20150516, end: 20150516

REACTIONS (6)
  - Gait disturbance [Unknown]
  - Disturbance in attention [Unknown]
  - Disability [Unknown]
  - Speech disorder [Unknown]
  - Balance disorder [Unknown]
  - Ill-defined disorder [Unknown]
